FAERS Safety Report 25017752 (Version 2)
Quarter: 2025Q1

REPORT INFORMATION
  Report Type: Spontaneous
  Country: FR (occurrence: FR)
  Receive Date: 20250227
  Receipt Date: 20250315
  Transmission Date: 20250409
  Serious: Yes (Hospitalization, Other)
  Sender: AUROBINDO
  Company Number: FR-MLMSERVICE-20250205-PI395636-00286-1

PATIENT
  Age: 72 Year
  Sex: Male

DRUGS (5)
  1. RITONAVIR [Interacting]
     Active Substance: RITONAVIR
     Indication: COVID-19
     Route: 065
  2. NIRMATRELVIR [Interacting]
     Active Substance: NIRMATRELVIR
     Indication: COVID-19 pneumonia
     Route: 065
  3. TACROLIMUS [Interacting]
     Active Substance: TACROLIMUS
     Indication: Immunosuppressant drug therapy
     Dosage: 1.5 MILLIGRAM, TWO TIMES A DAY (IMMEDIATE-RELEASE; TARGET TROUGH BLOOD CONCENTRATION: 5.0?6.0 MG/L)
     Route: 065
  4. VEKLURY [Interacting]
     Active Substance: REMDESIVIR
     Indication: COVID-19
     Route: 065
  5. MYCOPHENOLATE MOFETIL [Concomitant]
     Active Substance: MYCOPHENOLATE MOFETIL
     Indication: Immunosuppressant drug therapy
     Dosage: TARGET TROUGH PLASMA CONCENTRATION: 2.5 MG/L
     Route: 065

REACTIONS (8)
  - Hypertensive crisis [Unknown]
  - Thrombotic microangiopathy [Unknown]
  - Renal impairment [Recovered/Resolved]
  - Haematocrit decreased [Recovered/Resolved]
  - Microangiopathy [Unknown]
  - Red blood cell count decreased [Recovered/Resolved]
  - Drug interaction [Recovering/Resolving]
  - Overdose [Recovering/Resolving]
